FAERS Safety Report 12234349 (Version 2)
Quarter: 2016Q2

REPORT INFORMATION
  Report Type: Spontaneous
  Country: JP (occurrence: JP)
  Receive Date: 20160404
  Receipt Date: 20160412
  Transmission Date: 20160815
  Serious: Yes (Other)
  Sender: FDA-Public Use
  Company Number: JP-PFIZER INC-2016186664

PATIENT
  Age: 45 Year
  Sex: Male

DRUGS (10)
  1. EFFEXOR [Suspect]
     Active Substance: VENLAFAXINE HYDROCHLORIDE
     Dosage: 112.5 MG, DAILY
     Route: 048
     Dates: start: 2016, end: 2016
  2. HERBAL NOS [Concomitant]
     Active Substance: HERBALS
     Dosage: 7.5 MG, DAILY
     Route: 048
  3. XYZAL [Concomitant]
     Active Substance: LEVOCETIRIZINE DIHYDROCHLORIDE
     Dosage: 5 MG, DAILY
     Route: 048
  4. FLUNITRAZEPAM [Concomitant]
     Active Substance: FLUNITRAZEPAM
     Dosage: 1 MG, DAILY
     Route: 048
  5. EFFEXOR [Suspect]
     Active Substance: VENLAFAXINE HYDROCHLORIDE
     Dosage: 225 MG DAILY
     Route: 048
     Dates: start: 20160312, end: 2016
  6. LAMICTAL [Concomitant]
     Active Substance: LAMOTRIGINE
     Dosage: 300 MG, DAILY
     Route: 048
  7. EFFEXOR [Suspect]
     Active Substance: VENLAFAXINE HYDROCHLORIDE
     Dosage: 150 MG DAILY
     Route: 048
  8. RESTAS [Concomitant]
     Dosage: 2 MG, DAILY
     Route: 048
  9. REMERON [Concomitant]
     Active Substance: MIRTAZAPINE
     Dosage: 45 MG, DAILY
     Route: 048
  10. MILNACIPRAN [Concomitant]
     Active Substance: MILNACIPRAN
     Dosage: 100 MG, DAILY
     Route: 048

REACTIONS (5)
  - No therapeutic response [Unknown]
  - Urinary retention [Unknown]
  - Nausea [Unknown]
  - Thirst [Unknown]
  - Depressed mood [Unknown]

NARRATIVE: CASE EVENT DATE: 20160326
